FAERS Safety Report 6450211-9 (Version None)
Quarter: 2009Q4

REPORT INFORMATION
  Report Type: 
  Country: None (occurrence: None)
  Receive Date: 20091123
  Receipt Date: 20091113
  Transmission Date: 20100525
  Serious: Yes (Other)
  Sender: FDA-Public Use
  Company Number: CH-ASTRAZENECA-2009SE26485

PATIENT
  Age: 0 Week
  Sex: Female
  Weight: 3.3 kg

DRUGS (3)
  1. SEROQUEL [Suspect]
     Indication: DEPRESSION
     Route: 064
     Dates: end: 20091016
  2. SERTRALINE HCL [Suspect]
     Indication: DEPRESSION
     Route: 064
     Dates: end: 20091016
  3. TRANXILIUM [Suspect]
     Indication: DEPRESSION
     Route: 064

REACTIONS (1)
  - CLEFT PALATE [None]
